FAERS Safety Report 4864273-3 (Version None)
Quarter: 2005Q4

REPORT INFORMATION
  Report Type: 
  Country: None (occurrence: None)
  Receive Date: 20051222
  Receipt Date: 20051214
  Transmission Date: 20060501
  Serious: Yes (Hospitalization, Other)
  Sender: FDA-Public Use
  Company Number: JP-JNJFOC-20051106277

PATIENT
  Sex: Female
  Weight: 35 kg

DRUGS (6)
  1. DOXIL [Suspect]
     Indication: OVARIAN CANCER
     Dosage: RECEIVED A TOTAL OF 3 CYCLES
     Route: 042
  2. NATEGLINIDE [Concomitant]
     Route: 048
  3. NATEGLINIDE [Concomitant]
     Indication: DIABETES MELLITUS
     Route: 048
  4. GLIMEPIRIDE [Concomitant]
     Indication: DIABETES MELLITUS
     Route: 048
  5. ACETAMINOPHEN [Concomitant]
     Route: 048
  6. EPHEDRA TEAS [Concomitant]
     Route: 048

REACTIONS (6)
  - HAEMOGLOBIN DECREASED [None]
  - HYPERGLYCAEMIA [None]
  - INTERSTITIAL LUNG DISEASE [None]
  - LEUKOPENIA [None]
  - NEUTROPENIA [None]
  - PLATELET COUNT INCREASED [None]
